FAERS Safety Report 5270177-7 (Version None)
Quarter: 2007Q1

REPORT INFORMATION
  Report Type: 
  Country: None (occurrence: None)
  Receive Date: 20070320
  Receipt Date: 20070306
  Transmission Date: 20070707
  Serious: Yes (Hospitalization)
  Sender: FDA-Public Use
  Company Number: US-ROCHE-467351

PATIENT
  Age: 19 Year
  Sex: Male
  Weight: 86.2 kg

DRUGS (2)
  1. ACCUTANE [Suspect]
     Dosage: DOSAGE REGIMEN REPORTED AS 40-80 MG.
     Route: 048
     Dates: start: 19980515, end: 19980915
  2. PREDNISONE [Concomitant]
     Route: 048
     Dates: start: 19980731

REACTIONS (3)
  - CROHN'S DISEASE [None]
  - ILEAL PERFORATION [None]
  - INFLAMMATORY BOWEL DISEASE [None]
